FAERS Safety Report 8453640-7 (Version None)
Quarter: 2012Q2

REPORT INFORMATION
  Report Type: 
  Country: None (occurrence: None)
  Receive Date: 20120620
  Receipt Date: 20120608
  Transmission Date: 20120825
  Serious: Yes (Other)
  Sender: FDA-Public Use
  Company Number: JP-BRISTOL-MYERS SQUIBB COMPANY-16682296

PATIENT
  Age: 75 Year
  Sex: Female

DRUGS (5)
  1. MITOXANTRONE [Suspect]
     Indication: ACUTE MYELOID LEUKAEMIA
  2. VEPESID [Suspect]
     Indication: ACUTE MYELOID LEUKAEMIA
     Route: 041
  3. CYTARABINE [Suspect]
     Indication: ACUTE MYELOID LEUKAEMIA
  4. GEMTUZUMAB OZOGAMICIN [Suspect]
     Indication: ACUTE MYELOID LEUKAEMIA
  5. TRIMETHOPRIM + SULFAMETHOXAZOLE [Concomitant]
     Indication: ANTIFUNGAL PROPHYLAXIS
     Dosage: 1DF=1 TABLET 80 MG PLUS 400 MG.

REACTIONS (3)
  - CEREBRAL TOXOPLASMOSIS [None]
  - CYTOMEGALOVIRUS HEPATITIS [None]
  - HERPES ZOSTER [None]
